FAERS Safety Report 5422962-6 (Version None)
Quarter: 2007Q3

REPORT INFORMATION
  Report Type: 
  Country: None (occurrence: None)
  Receive Date: 20070820
  Receipt Date: 20070806
  Transmission Date: 20080115
  Serious: Yes (Death)
  Sender: FDA-Public Use
  Company Number: 1-15186073 MED -07168

PATIENT
  Age: 42 Year
  Sex: Male
  Weight: 130.6359 kg

DRUGS (1)
  1. TRAMADOL HCL [Suspect]
     Indication: OVERDOSE
     Dosage: ORAL
     Route: 048

REACTIONS (6)
  - CARDIOMEGALY [None]
  - CORONARY ARTERY DISEASE [None]
  - DILATATION VENTRICULAR [None]
  - HEPATIC STEATOSIS [None]
  - HEPATOMEGALY [None]
  - NEPHROSCLEROSIS [None]
